FAERS Safety Report 4668714-6 (Version None)
Quarter: 2005Q2

REPORT INFORMATION
  Report Type: 
  Country: None (occurrence: None)
  Receive Date: 20050519
  Receipt Date: 20050503
  Transmission Date: 20051028
  Serious: Yes (Death)
  Sender: FDA-Public Use
  Company Number: 8010427

PATIENT
  Age: 13 Year
  Sex: Female

DRUGS (3)
  1. KEPPRA [Suspect]
     Indication: EPILEPSY
     Dosage: 1500 MG 2/D
  2. PHENOBARBITONE [Concomitant]
  3. NITRAZEPAM [Concomitant]

REACTIONS (1)
  - DEATH [None]
